FAERS Safety Report 6562891-8 (Version None)
Quarter: 2010Q1

REPORT INFORMATION
  Report Type: 
  Country: None (occurrence: None)
  Receive Date: 20100130
  Receipt Date: 20091130
  Transmission Date: 20100710
  Serious: No
  Sender: FDA-Public Use
  Company Number: US-ABBOTT-09P-163-0611269-00

PATIENT
  Sex: Female
  Weight: 63.56 kg

DRUGS (1)
  1. HUMIRA [Suspect]
     Indication: CROHN'S DISEASE
     Dates: start: 20080527

REACTIONS (6)
  - ARTHRALGIA [None]
  - ECZEMA NUMMULAR [None]
  - INJECTION SITE HAEMATOMA [None]
  - JOINT SWELLING [None]
  - PEAU D'ORANGE [None]
  - WEIGHT DECREASED [None]
